FAERS Safety Report 14937580 (Version 2)
Quarter: 2018Q2

REPORT INFORMATION
  Report Type: Spontaneous
  Country: ES (occurrence: ES)
  Receive Date: 20180525
  Receipt Date: 20180525
  Transmission Date: 20180711
  Serious: Yes (Other)
  Sender: FDA-Public Use
  Company Number: PHHY2018ES004517

PATIENT
  Age: 28 Year
  Sex: Male

DRUGS (2)
  1. CICLOSPORIN [Suspect]
     Active Substance: CYCLOSPORINE
     Indication: NORMOCYTIC ANAEMIA
     Dosage: UNK
     Route: 065
  2. EPOETIN BETA [Suspect]
     Active Substance: ERYTHROPOIETIN
     Indication: NORMOCYTIC ANAEMIA
     Dosage: 10000 IU, UNK
     Route: 058

REACTIONS (2)
  - Gait disturbance [Recovered/Resolved]
  - Complex regional pain syndrome [Recovered/Resolved]
